FAERS Safety Report 7370446-0 (Version None)
Quarter: 2011Q1

REPORT INFORMATION
  Report Type: 
  Country: None (occurrence: None)
  Receive Date: 20110323
  Receipt Date: 20110316
  Transmission Date: 20110831
  Serious: Yes (Hospitalization)
  Sender: FDA-Public Use
  Company Number: US-BAYER-201041086NA

PATIENT
  Sex: Female
  Weight: 98 kg

DRUGS (7)
  1. YAZ [Suspect]
     Indication: CONTRACEPTION
  2. OCELLA [Suspect]
     Indication: PRODUCT USED FOR UNKNOWN INDICATION
     Dosage: UNK
     Dates: start: 20091001, end: 20091101
  3. YAZ [Suspect]
     Indication: MENSTRUATION IRREGULAR
     Dosage: UNK UNK, UNK
     Route: 048
     Dates: start: 20090701, end: 20090901
  4. BACTRIM DS [Concomitant]
     Indication: URINARY TRACT INFECTION
     Dates: start: 20091101, end: 20091101
  5. YASMIN [Suspect]
     Indication: CONTRACEPTION
  6. VICODIN [Concomitant]
     Indication: PAIN
     Dates: start: 20091101
  7. YASMIN [Suspect]
     Indication: MENSTRUATION IRREGULAR
     Route: 048
     Dates: start: 20090901, end: 20091101

REACTIONS (7)
  - CHOLELITHIASIS [None]
  - BACK PAIN [None]
  - ABDOMINAL PAIN UPPER [None]
  - VOMITING [None]
  - GALLBLADDER DISORDER [None]
  - NAUSEA [None]
  - DIARRHOEA [None]
